FAERS Safety Report 10030759 (Version 1)
Quarter: 2014Q1

REPORT INFORMATION
  Report Type: Spontaneous
  Country: US (occurrence: US)
  Receive Date: 20140323
  Receipt Date: 20140323
  Transmission Date: 20141002
  Serious: No
  Sender: FDA-Public Use
  Company Number: US-ALLERGAN-1401909US

PATIENT
  Sex: Female

DRUGS (3)
  1. LATISSE 0.03% [Suspect]
     Indication: GROWTH OF EYELASHES
     Dosage: UNK
     Dates: start: 20130128, end: 20130130
  2. PAXIL                              /00500401/ [Concomitant]
     Indication: ANXIETY
     Dosage: UNK UNK, QD
     Route: 048
  3. REFRESH TEARS [Concomitant]
     Indication: OCULAR HYPERAEMIA
     Dosage: UNK

REACTIONS (3)
  - Hypersensitivity [Recovered/Resolved]
  - Ocular hyperaemia [Recovered/Resolved]
  - Eye pruritus [Recovered/Resolved]
